FAERS Safety Report 9338662 (Version 2)
Quarter: 2013Q3

REPORT INFORMATION
  Report Type: Spontaneous
  Country: US (occurrence: US)
  Receive Date: 20130610
  Receipt Date: 20130731
  Transmission Date: 20140515
  Serious: No
  Sender: FDA-Public Use
  Company Number: US-PFIZER INC-2013174260

PATIENT
  Age: 47 Year
  Sex: Female
  Weight: 53.97 kg

DRUGS (15)
  1. LYRICA [Suspect]
     Indication: FIBROMYALGIA
     Dosage: 150 MG, 1X/DAY
     Route: 048
     Dates: end: 201212
  2. NEURONTIN [Suspect]
     Dosage: UNK, 3X/DAY
     Route: 048
  3. CYMBALTA [Concomitant]
     Dosage: 60 MG, 1X/DAY
  4. TRAZODONE [Concomitant]
     Dosage: 25 MG, 1X/DAY
  5. PROPRANOLOL [Concomitant]
     Dosage: 10 MG, AS NEEDED
  6. HYDROCODONE W/ACETAMINOPHEN [Concomitant]
     Dosage: 10/325 MG, AS NEEDED
  7. BUTALBITAL [Concomitant]
     Dosage: UNK, AS NEEDED
  8. VOLTAREN [Concomitant]
     Dosage: UNK
  9. CLONAZEPAM [Concomitant]
     Dosage: 1 MG, 2X/DAY
  10. MACROBID [Concomitant]
     Dosage: 100 MG, AS NEEDED
  11. RITALIN [Concomitant]
     Dosage: 10 MG, 2X/DAY
  12. WELLBUTRIN [Concomitant]
     Dosage: 100 MG, 2X/DAY
  13. MIDODRINE [Concomitant]
     Dosage: 10 MG, 3X/DAY
  14. TAMOXIFEN [Concomitant]
     Dosage: 20 MG, 1X/DAY
  15. RELPAX [Concomitant]
     Dosage: 40 MG, AS NEEDED

REACTIONS (8)
  - Intentional drug misuse [Unknown]
  - Autonomic nervous system imbalance [Unknown]
  - Quality of life decreased [Unknown]
  - Pain [Unknown]
  - Drug ineffective [Unknown]
  - Dizziness [Unknown]
  - Nausea [Unknown]
  - Drug hypersensitivity [Unknown]
